FAERS Safety Report 10930393 (Version 1)
Quarter: 2015Q1

REPORT INFORMATION
  Report Type: Spontaneous
  Country: US (occurrence: None)
  Receive Date: 20150318
  Receipt Date: 20150318
  Transmission Date: 20150721
  Serious: No
  Sender: FDA-Public Use
  Company Number: None

PATIENT
  Age: 45 Year
  Sex: Male

DRUGS (4)
  1. AMITRIPTALIN [Concomitant]
  2. KADIAN [Concomitant]
     Active Substance: MORPHINE SULFATE
  3. ALLOPURINOL. [Concomitant]
     Active Substance: ALLOPURINOL
  4. GLEEVEC [Suspect]
     Active Substance: IMATINIB MESYLATE
     Indication: MALIGNANT URINARY TRACT NEOPLASM
     Route: 048
     Dates: start: 20060808, end: 201501

REACTIONS (1)
  - Disease progression [None]

NARRATIVE: CASE EVENT DATE: 201501
